FAERS Safety Report 10510655 (Version 1)
Quarter: 2014Q4

REPORT INFORMATION
  Report Type: Spontaneous
  Country: US (occurrence: None)
  Receive Date: 20141009
  Receipt Date: 20141009
  Transmission Date: 20150528
  Serious: Yes (Hospitalization)
  Sender: FDA-Public Use
  Company Number: None

PATIENT
  Age: 62 Year
  Sex: Male
  Weight: 57.8 kg

DRUGS (1)
  1. LABETALOL [Suspect]
     Active Substance: LABETALOL\LABETALOL HYDROCHLORIDE
     Dates: start: 20140905

REACTIONS (1)
  - Syncope [None]

NARRATIVE: CASE EVENT DATE: 20140905
